FAERS Safety Report 5551463-X (Version None)
Quarter: 2007Q4

REPORT INFORMATION
  Report Type: 
  Country: None (occurrence: None)
  Receive Date: 20071212
  Receipt Date: 20071203
  Transmission Date: 20080405
  Serious: Yes (Life-Threatening, Hospitalization, Disabling, Other)
  Sender: FDA-Public Use
  Company Number: FR-ABBOTT-07P-056-0427298-00

PATIENT
  Sex: Female

DRUGS (12)
  1. HUMIRA [Suspect]
     Indication: RHEUMATOID ARTHRITIS
     Route: 058
     Dates: start: 20060901, end: 20070524
  2. ACEBUTOLOL [Concomitant]
     Indication: ESSENTIAL HYPERTENSION
     Dosage: 1/2 TABLET IN THE MORNING, 3/4 TABLET IN THE EVENING
     Route: 048
  3. CLONAZEPAM [Concomitant]
     Indication: DRUG USE FOR UNKNOWN INDICATION
     Route: 048
  4. RAMIPRIL [Concomitant]
     Indication: ESSENTIAL HYPERTENSION
     Route: 048
  5. PREDNISONE [Concomitant]
     Indication: DRUG USE FOR UNKNOWN INDICATION
     Route: 048
  6. CALCIUM [Concomitant]
     Indication: OSTEOPOROSIS
     Route: 048
  7. PANTOPRAZOLE SODIUM [Concomitant]
     Indication: DRUG USE FOR UNKNOWN INDICATION
     Route: 048
  8. ACETYLLEUCINE [Concomitant]
     Indication: DRUG USE FOR UNKNOWN INDICATION
     Route: 048
  9. PARACETAMOL [Concomitant]
     Indication: MUSCULOSKELETAL PAIN
     Route: 050
     Dates: end: 20070607
  10. PARACETAMOL [Concomitant]
     Indication: PAIN
     Route: 048
  11. INSULIN GLARGINE [Concomitant]
     Indication: TYPE 1 DIABETES MELLITUS
     Route: 058
  12. ASPARTE INSULIN [Concomitant]
     Indication: TYPE 1 DIABETES MELLITUS
     Dosage: 3 INJECTIONS PER DAY
     Route: 058

REACTIONS (5)
  - ANAEMIA [None]
  - ANORECTAL DISORDER [None]
  - METASTASES TO LIVER [None]
  - RECTAL HAEMORRHAGE [None]
  - RECTOSIGMOID CANCER [None]
